FAERS Safety Report 8115997-6 (Version None)
Quarter: 2011Q4

REPORT INFORMATION
  Report Type: 
  Country: None (occurrence: None)
  Receive Date: 20111227
  Receipt Date: 20110928
  Transmission Date: 20120403
  Serious: Yes (Other)
  Sender: FDA-Public Use
  Company Number: PHHY2011US53065

PATIENT
  Age: 40 Year
  Sex: Male

DRUGS (3)
  1. LYRICA [Concomitant]
  2. GILENYA [Suspect]
     Indication: MULTIPLE SCLEROSIS
     Dosage: 0.5 MG, QD, ORAL
     Route: 048
     Dates: start: 20110126, end: 20110818
  3. UROXATRAL [Concomitant]

REACTIONS (1)
  - HEPATIC ENZYME INCREASED [None]
